FAERS Safety Report 12768699 (Version 2)
Quarter: 2019Q4

REPORT INFORMATION
  Report Type: Spontaneous
  Country: DE (occurrence: DE)
  Receive Date: 20160921
  Receipt Date: 20191019
  Transmission Date: 20200122
  Serious: Yes (Other)
  Sender: FDA-Public Use
  Company Number: DE-TEVA-694853GER

PATIENT
  Age: 37 Year
  Sex: Female
  Weight: 97 kg

DRUGS (1)
  1. OXYCODONE [Suspect]
     Active Substance: OXYCODONE
     Indication: PAIN
     Dosage: 40 MILLIGRAM DAILY;
     Route: 048
     Dates: start: 20150523, end: 20160209

REACTIONS (3)
  - Maternal exposure during pregnancy [Unknown]
  - Live birth [Unknown]
  - Gestational diabetes [Unknown]
